FAERS Safety Report 15998107 (Version 1)
Quarter: 2019Q1

REPORT INFORMATION
  Report Type: Report from Study
  Country: CN (occurrence: CN)
  Receive Date: 20190223
  Receipt Date: 20190223
  Transmission Date: 20190418
  Serious: Yes (Hospitalization)
  Sender: FDA-Public Use
  Company Number: CN-AMGEN-CHNCT2019026593

PATIENT
  Age: 58 Year
  Sex: Male

DRUGS (17)
  1. VALSARTAN ^NICHI IKO^ [Concomitant]
     Active Substance: VALSARTAN
     Indication: HYPERTENSION
     Dosage: 80 MG, QD
     Route: 048
  2. SEVELAMER CARBONATE. [Concomitant]
     Active Substance: SEVELAMER CARBONATE
     Indication: HYPERPHOSPHATAEMIA
     Dosage: 0.8 G, TID
     Route: 048
  3. RECOMBINANT COAGULATION FACTOR VIII [Concomitant]
     Indication: NEPHROGENIC ANAEMIA
     Dosage: 3000 IU, Q2WK
     Route: 058
  4. HEPARIN SODIUM. [Concomitant]
     Active Substance: HEPARIN SODIUM
     Indication: HAEMODIALYSIS
     Dosage: 0.5 MG, TID
     Route: 048
  5. CINACALCET HCL [Suspect]
     Active Substance: CINACALCET HYDROCHLORIDE
     Dosage: 75 MG, UNK
     Route: 048
     Dates: start: 20180605, end: 20180703
  6. CINACALCET HCL [Suspect]
     Active Substance: CINACALCET HYDROCHLORIDE
     Dosage: 50 MG, UNK
     Route: 048
     Dates: start: 20180703, end: 20180828
  7. CALCIUM POLYSTYRENE RESIN [Concomitant]
     Indication: HYPERKALAEMIA
     Dosage: 5 MG, TID
     Route: 048
  8. CALCITRIOL. [Concomitant]
     Active Substance: CALCITRIOL
     Indication: HYPERPARATHYROIDISM SECONDARY
     Dosage: 1 MUG, 3 TIMES/WK
     Route: 042
  9. NIFEDIPINE. [Concomitant]
     Active Substance: NIFEDIPINE
     Indication: HYPERTENSION
     Dosage: 30 MG, QD
     Route: 048
  10. NIFEDIPINE. [Concomitant]
     Active Substance: NIFEDIPINE
     Dosage: UNK UNK, BID
     Route: 048
  11. LANTHANUM CARBONATE. [Concomitant]
     Active Substance: LANTHANUM CARBONATE
     Indication: HYPERPHOSPHATAEMIA
     Dosage: 500 MG, TID
     Route: 048
  12. CINACALCET HCL [Suspect]
     Active Substance: CINACALCET HYDROCHLORIDE
     Indication: HYPERPARATHYROIDISM SECONDARY
     Dosage: 25 MG, UNK
     Route: 048
     Dates: start: 20180410, end: 20180509
  13. CINACALCET HCL [Suspect]
     Active Substance: CINACALCET HYDROCHLORIDE
     Dosage: 50 MG, UNK
     Route: 048
     Dates: start: 20180510, end: 20180605
  14. CINACALCET HCL [Suspect]
     Active Substance: CINACALCET HYDROCHLORIDE
     Dosage: 75 MG, UNK
     Route: 048
     Dates: start: 20180829, end: 20181121
  15. METOPROLOL. [Concomitant]
     Active Substance: METOPROLOL
     Indication: HYPERTENSION
     Dosage: 47.5 MG, QD
     Route: 048
  16. METOPROLOL. [Concomitant]
     Active Substance: METOPROLOL
     Dosage: UNK UNK, QD
     Route: 048
  17. VALSARTAN ^NICHI IKO^ [Concomitant]
     Active Substance: VALSARTAN
     Dosage: UNK UNK, BID
     Route: 048

REACTIONS (1)
  - Lung infection [Recovered/Resolved]

NARRATIVE: CASE EVENT DATE: 20190122
